FAERS Safety Report 9185995 (Version 1)
Quarter: 2013Q1

REPORT INFORMATION
  Report Type: Spontaneous
  Country: RO (occurrence: RO)
  Receive Date: 20130325
  Receipt Date: 20130325
  Transmission Date: 20140127
  Serious: Yes (Hospitalization, Other)
  Sender: FDA-Public Use
  Company Number: RO-TEVA-392514ISR

PATIENT
  Sex: Male

DRUGS (9)
  1. AMLODIPINE [Suspect]
  2. ALPHA-METHYLDOPA [Suspect]
  3. B6 [Concomitant]
  4. B12 [Concomitant]
  5. ENOXAPARIN [Concomitant]
  6. FOLIC ACID [Concomitant]
  7. BUPIVACAINE [Concomitant]
     Route: 065
  8. METOCLOPRAMIDE [Concomitant]
  9. CLONIDINE [Concomitant]

REACTIONS (3)
  - Foetal growth restriction [Unknown]
  - Maternal drugs affecting foetus [None]
  - Caesarean section [None]
